FAERS Safety Report 5959477-2 (Version None)
Quarter: 2008Q4

REPORT INFORMATION
  Report Type: 
  Country: None (occurrence: None)
  Receive Date: 20081120
  Receipt Date: 20081113
  Transmission Date: 20090506
  Serious: Yes (Hospitalization)
  Sender: FDA-Public Use
  Company Number: US-BIOGENIDEC-2008BI013822

PATIENT
  Age: 57 Year
  Sex: Female

DRUGS (13)
  1. AVONEX [Suspect]
     Indication: MULTIPLE SCLEROSIS
     Route: 030
     Dates: start: 20080310, end: 20080512
  2. PROZAC [Concomitant]
     Indication: DEPRESSION
     Route: 048
  3. MIRAPEX [Concomitant]
     Indication: MULTIPLE SCLEROSIS
     Route: 048
  4. BACLOFEN [Concomitant]
     Indication: MUSCLE SPASMS
     Route: 048
  5. RILUTEK [Concomitant]
     Indication: AMYOTROPHIC LATERAL SCLEROSIS
     Route: 048
  6. LIPITOR [Concomitant]
     Indication: DYSLIPIDAEMIA
     Route: 048
  7. NORVASC [Concomitant]
     Indication: HYPERTENSION
     Route: 048
  8. METOPROLOL TARTRATE [Concomitant]
     Indication: HYPERTENSION
     Route: 048
  9. TIZANIDINE HCL [Concomitant]
     Indication: MUSCLE SPASMS
     Route: 048
  10. QUINIDINE SULFATE [Concomitant]
     Indication: DRUG USE FOR UNKNOWN INDICATION
     Route: 048
  11. COUMADIN [Concomitant]
     Indication: DEEP VEIN THROMBOSIS
     Dates: start: 20070101, end: 20080401
  12. PROTONIX [Concomitant]
     Indication: PROPHYLAXIS
     Dates: start: 20080501
  13. VALIUM [Concomitant]
     Indication: DRUG USE FOR UNKNOWN INDICATION

REACTIONS (17)
  - APHASIA [None]
  - ASTHENIA [None]
  - CELLULITIS [None]
  - CENTRAL NERVOUS SYSTEM LESION [None]
  - CLOSTRIDIUM DIFFICILE COLITIS [None]
  - DECREASED APPETITE [None]
  - DIARRHOEA [None]
  - DYSARTHRIA [None]
  - DYSPHAGIA [None]
  - EXTREMITY CONTRACTURE [None]
  - FATIGUE [None]
  - INTERNATIONAL NORMALISED RATIO INCREASED [None]
  - MUSCLE RIGIDITY [None]
  - NAUSEA [None]
  - PYREXIA [None]
  - TREMOR [None]
  - WEIGHT DECREASED [None]
